FAERS Safety Report 23054136 (Version 1)
Quarter: 2023Q4

REPORT INFORMATION
  Report Type: Spontaneous
  Country: US (occurrence: None)
  Receive Date: 20231010
  Receipt Date: 20231010
  Transmission Date: 20240110
  Serious: Yes (Disabling)
  Sender: FDA-Public Use
  Company Number: None

PATIENT
  Age: 70 Year
  Sex: Female
  Weight: 63 kg

DRUGS (1)
  1. XIIDRA [Suspect]
     Active Substance: LIFITEGRAST
     Indication: Dry eye
     Dosage: OTHER QUANTITY : 1 DROP(S);?FREQUENCY : TWICE A DAY;?
     Route: 047
     Dates: start: 20230418, end: 20230512

REACTIONS (8)
  - Dysgeusia [None]
  - Nausea [None]
  - Asthenia [None]
  - Malaise [None]
  - Decreased appetite [None]
  - Liver function test increased [None]
  - Toxicity to various agents [None]
  - Hypersomnia [None]

NARRATIVE: CASE EVENT DATE: 20230524
